FAERS Safety Report 4806946-4 (Version None)
Quarter: 2005Q4

REPORT INFORMATION
  Report Type: 
  Country: None (occurrence: None)
  Receive Date: 20051019
  Receipt Date: 20051004
  Transmission Date: 20060501
  Serious: Yes (Death)
  Sender: FDA-Public Use
  Company Number: GBS050918501

PATIENT
  Age: 53 Year
  Sex: Male

DRUGS (12)
  1. CYMBALTA [Suspect]
     Indication: DEPRESSION
     Dosage: 60 MG/1 DAY
     Dates: start: 20050601
  2. RISPERIDONE [Concomitant]
  3. TEMAZEPAM [Concomitant]
  4. DIAZEPAM [Concomitant]
  5. ATORVASTATIN CALCIUM [Concomitant]
  6. LANSOPRAZOLE [Concomitant]
  7. SERETIDE [Concomitant]
  8. SALBUTAMOL [Concomitant]
  9. VITAMIN B COMPLEX CAP [Concomitant]
  10. THIAMINE [Concomitant]
  11. NAFTIDROFURYL OXALATE [Concomitant]
  12. ASPIRIN [Concomitant]

REACTIONS (4)
  - CONDITION AGGRAVATED [None]
  - DEPRESSION [None]
  - PSYCHOTIC DISORDER [None]
  - SUDDEN DEATH [None]
